FAERS Safety Report 8170105-0 (Version None)
Quarter: 2012Q1

REPORT INFORMATION
  Report Type: 
  Country: None (occurrence: None)
  Receive Date: 20120228
  Receipt Date: 20120221
  Transmission Date: 20120608
  Serious: Yes (Other)
  Sender: FDA-Public Use
  Company Number: GB-B.I. PHARMACEUTICALS,INC./RIDGEFIELD-2012-UK-00118UK

PATIENT
  Age: 62 Year
  Sex: Female
  Weight: 106 kg

DRUGS (8)
  1. GLICLAZIDE [Concomitant]
  2. SYMBICORT [Concomitant]
  3. SULPHONYL UREA [Concomitant]
  4. MONTELUKAST [Concomitant]
  5. SIMVASTATIN [Concomitant]
  6. ALBUTEROL [Concomitant]
  7. TRAJENTA [Suspect]
     Indication: DIABETES MELLITUS
     Dates: start: 20111025, end: 20120117
  8. LOSARTAN POTASSIUM [Concomitant]

REACTIONS (1)
  - GLOMERULAR FILTRATION RATE DECREASED [None]
